FAERS Safety Report 7841442-1 (Version None)
Quarter: 2011Q4

REPORT INFORMATION
  Report Type: 
  Country: None (occurrence: None)
  Receive Date: 20111025
  Receipt Date: 20111013
  Transmission Date: 20120403
  Serious: Yes (Other)
  Sender: FDA-Public Use
  Company Number: US-JNJFOC-20111006268

PATIENT

DRUGS (4)
  1. PREDNISONE [Concomitant]
     Dates: start: 20100101
  2. METHOTREXATE [Concomitant]
     Dates: end: 20100101
  3. REMICADE [Suspect]
     Route: 042
     Dates: start: 20110101
  4. REMICADE [Suspect]
     Indication: SPINAL OSTEOARTHRITIS
     Route: 042

REACTIONS (2)
  - EYE HAEMORRHAGE [None]
  - PAIN [None]
